FAERS Safety Report 5065552-X (Version None)
Quarter: 2006Q3

REPORT INFORMATION
  Report Type: 
  Country: None (occurrence: None)
  Receive Date: 20060731
  Receipt Date: 20060726
  Transmission Date: 20061208
  Serious: Yes (Hospitalization)
  Sender: FDA-Public Use
  Company Number: 456032

PATIENT
  Age: 47 Year
  Sex: Male

DRUGS (5)
  1. ARTIST [Suspect]
     Indication: CONGESTIVE CARDIOMYOPATHY
     Dosage: 1.25MG TWICE PER DAY
     Route: 048
     Dates: start: 20060203, end: 20060312
  2. ALLOPURINOL [Suspect]
     Indication: HYPERURICAEMIA
     Dosage: 100MG TWICE PER DAY
     Route: 048
     Dates: start: 20060126, end: 20060306
  3. ALDACTONE [Suspect]
     Indication: HYPERTENSION
     Dosage: 25MG PER DAY
     Route: 048
     Dates: start: 20060201, end: 20060312
  4. OLMETEC [Suspect]
     Indication: HYPERTENSION
     Dosage: 5MG PER DAY
     Route: 048
     Dates: start: 20060203, end: 20060312
  5. LASIX [Concomitant]
     Dates: start: 20060125

REACTIONS (6)
  - DRUG ERUPTION [None]
  - EYELID DISORDER [None]
  - FACE OEDEMA [None]
  - INFECTION [None]
  - LYMPHADENOPATHY [None]
  - PYREXIA [None]
